FAERS Safety Report 21644243 (Version 2)
Quarter: 2022Q4

REPORT INFORMATION
  Report Type: Spontaneous
  Country: JP (occurrence: None)
  Receive Date: 20221125
  Receipt Date: 20221223
  Transmission Date: 20230113
  Serious: Yes (Hospitalization, Other)
  Sender: FDA-Public Use
  Company Number: 2022A385043

PATIENT
  Age: 83 Year
  Sex: Male

DRUGS (13)
  1. LYNPARZA [Suspect]
     Active Substance: OLAPARIB
     Indication: Hormone-refractory prostate cancer
     Dosage: NUMBER OF SEPARATE DOSAGES UNKNOWN
     Route: 048
     Dates: start: 20210413, end: 20220516
  2. LYRICA [Concomitant]
     Active Substance: PREGABALIN
     Dosage: DOSE UNKNOWN
     Route: 065
  3. ROSUVASTATIN [Concomitant]
     Active Substance: ROSUVASTATIN
     Dosage: DOSE UNKNOWN
     Route: 065
  4. ASPIRIN [Concomitant]
     Active Substance: ASPIRIN
     Dosage: DOSE UNKNOWN
     Route: 065
  5. BENZBROMARONE [Concomitant]
     Active Substance: BENZBROMARONE
     Dosage: DOSE UNKNOWN
     Route: 065
  6. POTOREND [Concomitant]
     Dosage: DOSE UNKNOWN
     Route: 065
  7. LOPERAMIDE [Concomitant]
     Active Substance: LOPERAMIDE
     Dosage: DOSE UNKNOWN
     Route: 065
  8. LOXOPROFEN [Concomitant]
     Active Substance: LOXOPROFEN
     Dosage: DOSE UNKNOWN
     Route: 065
  9. METHYLCOBALAMIN [Concomitant]
     Active Substance: METHYLCOBALAMIN
     Dosage: DOSE UNKNOWN
     Route: 065
  10. NEUROTROPIN [Concomitant]
     Active Substance: NEUROTROPIN
     Dosage: DOSE UNKNOWN
     Route: 065
  11. CALONAL [Concomitant]
     Active Substance: ACETAMINOPHEN
     Dosage: DOSE UNKNOWN
     Route: 065
  12. LULICONAZOLE [Concomitant]
     Active Substance: LULICONAZOLE
     Dosage: DOSE UNKNOWN
     Route: 065
  13. NAFTOPIDIL [Concomitant]
     Active Substance: NAFTOPIDIL
     Dosage: DOSE UNKNOWN
     Route: 065

REACTIONS (1)
  - Interstitial lung disease [Recovered/Resolved]

NARRATIVE: CASE EVENT DATE: 20220516
